FAERS Safety Report 7627011-7 (Version None)
Quarter: 2011Q3

REPORT INFORMATION
  Report Type: 
  Country: None (occurrence: None)
  Receive Date: 20110721
  Receipt Date: 20110713
  Transmission Date: 20111222
  Serious: Yes (Other)
  Sender: FDA-Public Use
  Company Number: PHHY2011JP63989

PATIENT
  Age: 60 Year
  Sex: Male

DRUGS (1)
  1. TOLBUTAMIDE [Suspect]
     Indication: DIABETES MELLITUS

REACTIONS (6)
  - GRANULOMA ANNULARE [None]
  - SKIN PLAQUE [None]
  - ERYTHEMA [None]
  - INDURATION [None]
  - PAPULE [None]
  - RASH [None]
